FAERS Safety Report 6292588-3 (Version None)
Quarter: 2009Q3

REPORT INFORMATION
  Report Type: 
  Country: None (occurrence: None)
  Receive Date: 20090731
  Receipt Date: 20090723
  Transmission Date: 20100115
  Serious: Yes (Other)
  Sender: FDA-Public Use
  Company Number: US-ASTRAZENECA-2009UW21055

PATIENT

DRUGS (2)
  1. SEROQUEL [Suspect]
     Route: 048
  2. TAPAZOLE [Concomitant]
     Indication: THYROID DISORDER
     Route: 065

REACTIONS (3)
  - BRADYCARDIA [None]
  - HEPATIC CIRRHOSIS [None]
  - THYROID DISORDER [None]
